FAERS Safety Report 23445177 (Version 7)
Quarter: 2024Q2

REPORT INFORMATION
  Report Type: Report from Study
  Country: CA (occurrence: CA)
  Receive Date: 20240125
  Receipt Date: 20240629
  Transmission Date: 20240716
  Serious: Yes (Death, Hospitalization)
  Sender: FDA-Public Use
  Company Number: CA-ABBVIE-5590848

PATIENT
  Age: 39 Year
  Sex: Male

DRUGS (3)
  1. EPCORITAMAB [Suspect]
     Active Substance: EPCORITAMAB
     Indication: Diffuse large B-cell lymphoma
     Dosage: 48 MG FORM STRENGTH: 48 MILLIGRAM, EVERY 1
     Route: 058
     Dates: start: 20231228, end: 20240125
  2. EPCORITAMAB [Suspect]
     Active Substance: EPCORITAMAB
     Dosage: UNK
     Route: 058
  3. EPCORITAMAB [Suspect]
     Active Substance: EPCORITAMAB
     Dosage: FORM STRENGTH: 48 MILLIGRAM
     Route: 058

REACTIONS (26)
  - Pancytopenia [Fatal]
  - Enterovirus infection [Fatal]
  - Vein rupture [Fatal]
  - Stress [Fatal]
  - Asthenia [Fatal]
  - Emotional distress [Fatal]
  - Hepatosplenomegaly [Fatal]
  - Epistaxis [Fatal]
  - Cytokine release syndrome [Fatal]
  - Cough [Fatal]
  - Jaundice [Fatal]
  - Abdominal pain [Fatal]
  - Contusion [Fatal]
  - Hyperhidrosis [Fatal]
  - Rhinovirus infection [Fatal]
  - Fatigue [Fatal]
  - Pyrexia [Fatal]
  - Dehydration [Fatal]
  - Bedridden [Fatal]
  - Unevaluable event [Fatal]
  - Altered state of consciousness [Fatal]
  - Defaecation urgency [Fatal]
  - Arthralgia [Fatal]
  - Depressed mood [Fatal]
  - Asthenia [Not Recovered/Not Resolved]
  - Asthenia [Recovered/Resolved]

NARRATIVE: CASE EVENT DATE: 20240101
